FAERS Safety Report 14608518 (Version 2)
Quarter: 2018Q1

REPORT INFORMATION
  Report Type: Spontaneous
  Country: FI (occurrence: FI)
  Receive Date: 20180307
  Receipt Date: 20180307
  Transmission Date: 20180509
  Serious: Yes (Other)
  Sender: FDA-Public Use
  Company Number: FI-CONCORDIA PHARMACEUTICALS INC.-E2B_00010337

PATIENT
  Age: 13 Year
  Sex: Male
  Weight: 73 kg

DRUGS (5)
  1. AMLODIPIN [Suspect]
     Active Substance: AMLODIPINE BESYLATE
     Indication: TUBULOINTERSTITIAL NEPHRITIS
     Route: 065
     Dates: start: 20170101
  2. HUMIRA [Suspect]
     Active Substance: ADALIMUMAB
     Indication: CROHN^S DISEASE
     Route: 058
     Dates: start: 20170327, end: 20170601
  3. PENTASA [Concomitant]
     Active Substance: MESALAMINE
     Indication: CROHN^S DISEASE
     Route: 048
     Dates: end: 20170601
  4. CORTIMENT [Concomitant]
     Indication: CROHN^S DISEASE
     Dates: end: 20170701
  5. PREDNISOLONE. [Suspect]
     Active Substance: PREDNISOLONE
     Indication: TUBULOINTERSTITIAL NEPHRITIS
     Route: 048
     Dates: start: 20170701

REACTIONS (9)
  - Drug specific antibody [Unknown]
  - Blood pressure increased [Unknown]
  - Tubulointerstitial nephritis [Recovering/Resolving]
  - Drug level changed [Unknown]
  - Blood creatinine increased [Recovering/Resolving]
  - Renal tubular injury [Recovering/Resolving]
  - Renal failure [Recovering/Resolving]
  - Haemoglobin decreased [Recovering/Resolving]
  - Red blood cell sedimentation rate abnormal [Recovered/Resolved]

NARRATIVE: CASE EVENT DATE: 20170101
